FAERS Safety Report 17113865 (Version 1)
Quarter: 2019Q4

REPORT INFORMATION
  Report Type: Report from Study
  Country: IT (occurrence: IT)
  Receive Date: 20191205
  Receipt Date: 20191205
  Transmission Date: 20200122
  Serious: Yes (Hospitalization)
  Sender: FDA-Public Use
  Company Number: IT-TEVA-2019-IT-1146787

PATIENT
  Age: 68 Year
  Sex: Male

DRUGS (4)
  1. TICLOPIDINE [Suspect]
     Active Substance: TICLOPIDINE
     Indication: PERIPHERAL ARTERIAL OCCLUSIVE DISEASE
     Dosage: 250 MILLIGRAM
     Route: 048
     Dates: end: 20190830
  2. ACETYLSALICYLIC ACID [Interacting]
     Active Substance: ASPIRIN
     Indication: PERIPHERAL ARTERIAL OCCLUSIVE DISEASE
     Dosage: 100 MILLIGRAM
     Route: 048
     Dates: end: 20190830
  3. METFORMIN [Concomitant]
     Active Substance: METFORMIN HYDROCHLORIDE
  4. CATAPRESAN TTS-2 5 MG CEROTTI TRANSDERMICI [Concomitant]
     Active Substance: CLONIDINE

REACTIONS (4)
  - Traumatic intracranial haematoma [Recovering/Resolving]
  - Subarachnoid haemorrhage [Recovering/Resolving]
  - Drug interaction [Recovering/Resolving]
  - Subdural haematoma [Recovering/Resolving]

NARRATIVE: CASE EVENT DATE: 20190830
